FAERS Safety Report 6130219-3 (Version None)
Quarter: 2009Q1

REPORT INFORMATION
  Report Type: 
  Country: None (occurrence: None)
  Receive Date: 20090324
  Receipt Date: 20090320
  Transmission Date: 20090719
  Serious: Yes (Other)
  Sender: FDA-Public Use
  Company Number: GR-BRISTOL-MYERS SQUIBB COMPANY-14542237

PATIENT
  Age: 75 Year
  Sex: Female

DRUGS (1)
  1. PROCEF TABS 500 MG [Suspect]
     Indication: RESPIRATORY TRACT INFECTION
     Route: 048
     Dates: start: 20090216, end: 20090222

REACTIONS (2)
  - HEPATITIS ACUTE [None]
  - LEUKOPENIA [None]
